FAERS Safety Report 4564694-2 (Version None)
Quarter: 2005Q1

REPORT INFORMATION
  Report Type: 
  Country: None (occurrence: None)
  Receive Date: 20050126
  Receipt Date: 20050113
  Transmission Date: 20050727
  Serious: Yes (Death)
  Sender: FDA-Public Use
  Company Number: 2005012880

PATIENT
  Age: 83 Year
  Sex: Female

DRUGS (1)
  1. CELEBRA [Suspect]
     Indication: OSTEOARTHRITIS
     Dosage: 200 MG (200 MG, 1 IN 1 D), ORAL
     Route: 048
     Dates: start: 20020501, end: 20040111

REACTIONS (4)
  - ARTHRALGIA [None]
  - CARDIAC DISORDER [None]
  - FEELING ABNORMAL [None]
  - MYOCARDIAL INFARCTION [None]
